FAERS Safety Report 6704796-5 (Version None)
Quarter: 2010Q2

REPORT INFORMATION
  Report Type: 
  Country: None (occurrence: None)
  Receive Date: 20100430
  Receipt Date: 20100104
  Transmission Date: 20101027
  Serious: No
  Sender: FDA-Public Use
  Company Number: US-ASTRAZENECA-2010SE00113

PATIENT
  Age: 57 Year
  Sex: Female

DRUGS (5)
  1. NEXIUM [Suspect]
     Indication: NAUSEA
     Route: 048
     Dates: start: 20091101
  2. NEXIUM [Suspect]
     Indication: GASTRITIS
     Route: 048
     Dates: start: 20091101
  3. PRAVACHOL [Concomitant]
  4. ESTRACE [Concomitant]
  5. ACTONEL [Concomitant]

REACTIONS (2)
  - FLATULENCE [None]
  - PRODUCT TASTE ABNORMAL [None]
